APPROVED DRUG PRODUCT: HALCINONIDE
Active Ingredient: HALCINONIDE
Strength: 0.1%
Dosage Form/Route: SOLUTION;TOPICAL
Application: A217671 | Product #001 | TE Code: AT
Applicant: ENCUBE ETHICALS PRIVATE LTD
Approved: May 29, 2024 | RLD: No | RS: Yes | Type: RX